FAERS Safety Report 5253011-0 (Version None)
Quarter: 2007Q1

REPORT INFORMATION
  Report Type: 
  Country: None (occurrence: None)
  Receive Date: 20070301
  Receipt Date: 20070223
  Transmission Date: 20070707
  Serious: Yes (Other)
  Sender: FDA-Public Use
  Company Number: HQWYE018127FEB07

PATIENT
  Sex: Female

DRUGS (2)
  1. PREMARIN [Suspect]
     Indication: MENOPAUSE
     Route: 048
     Dates: start: 20070101
  2. PROVERA [Suspect]
     Route: 048

REACTIONS (1)
  - INTESTINAL ISCHAEMIA [None]
